FAERS Safety Report 24630735 (Version 1)
Quarter: 2024Q4

REPORT INFORMATION
  Report Type: Spontaneous
  Country: US (occurrence: US)
  Receive Date: 20241118
  Receipt Date: 20241118
  Transmission Date: 20250115
  Serious: No
  Sender: ABBVIE
  Company Number: US-ABBVIE-5999500

PATIENT

DRUGS (4)
  1. LUPRON [Suspect]
     Active Substance: LEUPROLIDE ACETATE
     Indication: Breast cancer
     Route: 065
     Dates: start: 202404
  2. IBRANCE [Suspect]
     Active Substance: PALBOCICLIB
     Indication: Breast cancer
     Dosage: FREQUENCY:1 TABLET PO DAILY DAYS 1-21 OF 28 DAY CYCLE
     Route: 048
     Dates: start: 20241104
  3. IBRANCE [Suspect]
     Active Substance: PALBOCICLIB
     Indication: Breast cancer
     Dosage: FREQUENCY:1 TABLET PO DAILY DAYS 1-21 OF 28 DAY CYCLE?LAST ADMIN DATE: 2024
     Route: 048
     Dates: start: 202404
  4. ANASTROZOLE [Concomitant]
     Active Substance: ANASTROZOLE
     Indication: Breast cancer
     Dates: start: 202404

REACTIONS (2)
  - Lymphadenopathy mediastinal [Unknown]
  - Pneumonitis [Unknown]
